FAERS Safety Report 5515142-7 (Version None)
Quarter: 2007Q4

REPORT INFORMATION
  Report Type: 
  Country: None (occurrence: None)
  Receive Date: 20071113
  Receipt Date: 20070117
  Transmission Date: 20080405
  Serious: No
  Sender: FDA-Public Use
  Company Number: A0635997A

PATIENT
  Age: 90 Year
  Sex: Male

DRUGS (8)
  1. COREG [Suspect]
     Dosage: 6.25MG PER DAY
     Route: 048
     Dates: start: 20061229
  2. UNIVASC [Concomitant]
  3. DIOXIN [Concomitant]
  4. CARBIDOPA AND LEVODOPA [Concomitant]
  5. POTASSIUM CHLORIDE [Concomitant]
  6. COMTAN [Concomitant]
  7. FUROSEMIDE [Concomitant]
  8. RIMADYL [Concomitant]

REACTIONS (3)
  - ADVERSE EVENT [None]
  - HEART RATE IRREGULAR [None]
  - LISTLESS [None]
